FAERS Safety Report 6864917-0 (Version None)
Quarter: 2010Q3

REPORT INFORMATION
  Report Type: 
  Country: None (occurrence: None)
  Receive Date: 20100721
  Receipt Date: 20080411
  Transmission Date: 20110219
  Serious: No
  Sender: FDA-Public Use
  Company Number: US-PFIZER INC-2008029260

PATIENT
  Sex: Male
  Weight: 99.8 kg

DRUGS (4)
  1. CHANTIX [Suspect]
     Indication: SMOKING CESSATION THERAPY
     Dates: start: 20080320
  2. PREVACID [Concomitant]
     Indication: HYPERCHLORHYDRIA
  3. OXYCODONE [Concomitant]
     Indication: PAIN
  4. LORAZEPAM [Concomitant]
     Indication: MUSCLE SPASMS

REACTIONS (5)
  - ABNORMAL DREAMS [None]
  - CONSTIPATION [None]
  - DISTURBANCE IN ATTENTION [None]
  - NAUSEA [None]
  - PSYCHOMOTOR HYPERACTIVITY [None]
